FAERS Safety Report 14530854 (Version 2)
Quarter: 2018Q3

REPORT INFORMATION
  Report Type: Spontaneous
  Country: FR (occurrence: FR)
  Receive Date: 20180214
  Receipt Date: 20180730
  Transmission Date: 20181010
  Serious: Yes (Hospitalization)
  Sender: FDA-Public Use
  Company Number: FR-PFIZER INC-2018058665

PATIENT
  Age: 82 Year
  Sex: Female

DRUGS (4)
  1. HAVLANE [Suspect]
     Active Substance: LOPRAZOLAM
     Dosage: UNK
     Route: 048
     Dates: start: 20180113, end: 20180113
  2. BISOCE [Suspect]
     Active Substance: BISOPROLOL
     Dosage: UNK
     Route: 048
     Dates: start: 20180113
  3. AMLOR [Suspect]
     Active Substance: AMLODIPINE BESYLATE
     Dosage: UNK
  4. LAROXYL [Suspect]
     Active Substance: AMITRIPTYLINE HYDROCHLORIDE
     Dosage: UNK
     Route: 048
     Dates: start: 20180113, end: 20180113

REACTIONS (6)
  - Stress cardiomyopathy [Recovered/Resolved with Sequelae]
  - Tachypnoea [Recovered/Resolved]
  - Hypotension [Recovered/Resolved]
  - Coma [Recovered/Resolved]
  - Poisoning deliberate [Unknown]
  - Electrocardiogram QT prolonged [Recovered/Resolved]

NARRATIVE: CASE EVENT DATE: 201801
